FAERS Safety Report 16409648 (Version 3)
Quarter: 2024Q4

REPORT INFORMATION
  Report Type: Spontaneous
  Country: CA (occurrence: CA)
  Receive Date: 20190610
  Receipt Date: 20241223
  Transmission Date: 20250115
  Serious: Yes (Life-Threatening, Hospitalization, Other)
  Sender: PFIZER
  Company Number: CA-PFIZER INC-2019244871

PATIENT
  Age: 15 Year
  Sex: Female
  Weight: 40 kg

DRUGS (18)
  1. TIGECYCLINE [Suspect]
     Active Substance: TIGECYCLINE
     Indication: Burkholderia cepacia complex infection
     Dosage: 50 MG, 2X/DAY
     Route: 042
  2. TIGECYCLINE [Suspect]
     Active Substance: TIGECYCLINE
     Indication: Bacterial disease carrier
  3. MEROPENEM [Suspect]
     Active Substance: MEROPENEM
     Indication: Burkholderia cepacia complex infection
     Dosage: 120 MG/KG, 1X/DAY
     Route: 042
  4. MEROPENEM [Suspect]
     Active Substance: MEROPENEM
     Indication: Bacterial disease carrier
  5. CHLORAMPHENICOL [Suspect]
     Active Substance: CHLORAMPHENICOL
     Indication: Burkholderia cepacia complex infection
     Dosage: 70 MG/KG, DAILY
     Route: 042
  6. SULFAMETHOXAZOLE AND TRIMETHOPRIM [Suspect]
     Active Substance: SULFAMETHOXAZOLE\TRIMETHOPRIM
     Indication: Burkholderia cepacia complex infection
     Dosage: 20 MG/KG, DAILY
     Route: 042
  7. AZACTAM [Concomitant]
     Active Substance: AZTREONAM
     Dosage: UNK
  8. CEFTAZIDIME [Concomitant]
     Active Substance: CEFTAZIDIME
     Dosage: UNK
  9. METOCLOPRAMIDE [Concomitant]
     Active Substance: METOCLOPRAMIDE
     Dosage: UNK
     Route: 048
  10. PANCRELIPASE [Concomitant]
     Active Substance: PANCRELIPASE
     Dosage: UNK
  11. PULMOZYME [Concomitant]
     Active Substance: DORNASE ALFA
     Dosage: UNK
  12. SACCHAROMYCES CEREVISIAE [Concomitant]
     Active Substance: SACCHAROMYCES CEREVISIAE
     Dosage: UNK
  13. TOBRAMYCIN [Concomitant]
     Active Substance: TOBRAMYCIN\TOBRAMYCIN SULFATE
     Dosage: INHALED
  14. RETINOL [Concomitant]
     Active Substance: RETINOL
     Dosage: UNK
  15. ERGOCALCIFEROL [Concomitant]
     Active Substance: ERGOCALCIFEROL
     Dosage: UNK
  16. VITAMIN E [Concomitant]
     Active Substance: .ALPHA.-TOCOPHEROL
     Dosage: UNK
  17. VITAMIN K [Concomitant]
     Active Substance: PHYTONADIONE
     Dosage: UNK
  18. VITAMINS [Concomitant]
     Active Substance: VITAMINS
     Dosage: UNK

REACTIONS (1)
  - Drug ineffective [Unknown]
